FAERS Safety Report 8852099 (Version 2)
Quarter: 2012Q4

REPORT INFORMATION
  Report Type: 
  Country: US (occurrence: US)
  Receive Date: 20121022
  Receipt Date: 20121030
  Transmission Date: 20130627
  Serious: No
  Sender: FDA-Public Use
  Company Number: US-009507513-1210USA005331

PATIENT
  Sex: Female

DRUGS (1)
  1. AZASITE [Suspect]
     Indication: BLEPHARITIS
     Dosage: 1 DF, qd
     Route: 047
     Dates: start: 2012

REACTIONS (10)
  - Cardiac disorder [Recovered/Resolved]
  - Product quality issue [Unknown]
  - Drug administration error [Unknown]
  - Inappropriate schedule of drug administration [Unknown]
  - Off label use [Unknown]
  - Overdose [Unknown]
  - Product quality issue [Unknown]
  - Product packaging quantity issue [Unknown]
  - Incorrect drug administration duration [Unknown]
  - Skin disorder [Unknown]
